FAERS Safety Report 16763799 (Version 1)
Quarter: 2019Q3

REPORT INFORMATION
  Report Type: Spontaneous
  Country: CN (occurrence: CN)
  Receive Date: 20190902
  Receipt Date: 20190902
  Transmission Date: 20191005
  Serious: Yes (Death, Other)
  Sender: FDA-Public Use
  Company Number: CN-ACTELION-A-CH2019-195040

PATIENT
  Age: 14 Day
  Sex: Male
  Weight: 4 kg

DRUGS (2)
  1. ILOPROST. [Suspect]
     Active Substance: ILOPROST
     Indication: CONGENITAL CARDIOVASCULAR ANOMALY
     Route: 055
  2. BOSENTAN. [Suspect]
     Active Substance: BOSENTAN
     Indication: CONGENITAL CARDIOVASCULAR ANOMALY
     Dosage: 2 MG/KG, BID
     Route: 048

REACTIONS (3)
  - Haemodynamic instability [Fatal]
  - Anastomotic haemorrhage [Fatal]
  - Sternotomy [Unknown]
